FAERS Safety Report 14973183 (Version 1)
Quarter: 2018Q2

REPORT INFORMATION
  Report Type: Spontaneous
  Country: US (occurrence: US)
  Receive Date: 20180605
  Receipt Date: 20180605
  Transmission Date: 20180711
  Serious: Yes (Other)
  Sender: FDA-Public Use
  Company Number: PHEH2018US020910

PATIENT
  Sex: Female

DRUGS (1)
  1. CEFDINIR. [Suspect]
     Active Substance: CEFDINIR
     Indication: PRODUCT USED FOR UNKNOWN INDICATION
     Route: 065

REACTIONS (6)
  - Meniere^s disease [Unknown]
  - Sinusitis [Unknown]
  - Hypoacusis [Unknown]
  - Speech sound disorder [Unknown]
  - Rhinorrhoea [Recovering/Resolving]
  - Fall [Unknown]
